FAERS Safety Report 15673668 (Version 1)
Quarter: 2018Q4

REPORT INFORMATION
  Report Type: Spontaneous
  Country: BR (occurrence: BR)
  Receive Date: 20181129
  Receipt Date: 20181129
  Transmission Date: 20190205
  Serious: Yes (Other)
  Sender: FDA-Public Use
  Company Number: BR-MYLANLABS-2018M1088527

PATIENT
  Age: 32 Year
  Sex: Female

DRUGS (8)
  1. WARFARIN [Suspect]
     Active Substance: WARFARIN
     Indication: PRODUCT USED FOR UNKNOWN INDICATION
     Dosage: UNK,(DISCONTINUED IN EARLY PREGNANCY)
     Route: 065
  2. HEPARIN [Suspect]
     Active Substance: HEPARIN SODIUM
     Indication: EJECTION FRACTION
  3. WARFARIN [Suspect]
     Active Substance: WARFARIN
     Dosage: 5 MILLIGRAM, QD, (AFTER DELIVERY)
     Route: 065
  4. FUROSEMIDE. [Suspect]
     Active Substance: FUROSEMIDE
     Indication: PRODUCT USED FOR UNKNOWN INDICATION
     Dosage: 40 MILLIGRAM, QD
     Route: 065
  5. METOPROLOL. [Suspect]
     Active Substance: METOPROLOL
     Indication: PRODUCT USED FOR UNKNOWN INDICATION
     Dosage: 100 MILLIGRAM, QD
     Route: 065
  6. HEPARIN [Suspect]
     Active Substance: HEPARIN SODIUM
     Indication: CARDIAC VALVE THICKENING
     Dosage: 80 MILLIGRAM, QD,(LOW MOLECULAR WEIGHT HEPARIN(LMWH) FULL DOSE)
     Route: 065
  7. FONDAPARINUX MYLAN [Suspect]
     Active Substance: FONDAPARINUX
     Indication: PRODUCT USED FOR UNKNOWN INDICATION
     Dosage: 2.5 MILLIGRAM, QD
     Route: 065
  8. DIGOXIN. [Suspect]
     Active Substance: DIGOXIN
     Indication: PRODUCT USED FOR UNKNOWN INDICATION
     Dosage: UNK
     Route: 065

REACTIONS (6)
  - Platelet count decreased [Unknown]
  - Maternal exposure during pregnancy [Recovered/Resolved]
  - Live birth [Recovered/Resolved]
  - Low birth weight baby [Unknown]
  - Dyspnoea [Unknown]
  - Premature delivery [Recovered/Resolved]
